FAERS Safety Report 5204651-6 (Version None)
Quarter: 2007Q1

REPORT INFORMATION
  Report Type: 
  Country: None (occurrence: None)
  Receive Date: 20070110
  Receipt Date: 20060606
  Transmission Date: 20070707
  Serious: No
  Sender: FDA-Public Use
  Company Number: US-BRISTOL-MYERS SQUIBB COMPANY-13402995

PATIENT
  Age: 41 Year
  Sex: Female
  Weight: 63 kg

DRUGS (6)
  1. ABILIFY [Suspect]
     Indication: DREAMY STATE
     Route: 048
     Dates: start: 20060606
  2. PROZAC [Concomitant]
  3. DURAGESIC-100 [Concomitant]
  4. OXYCODONE HCL [Concomitant]
  5. TRAZODONE HCL [Concomitant]
  6. XANAX [Concomitant]

REACTIONS (1)
  - NAUSEA [None]
